FAERS Safety Report 26183263 (Version 1)
Quarter: 2025Q4

REPORT INFORMATION
  Report Type: Spontaneous
  Country: US (occurrence: US)
  Receive Date: 20251221
  Receipt Date: 20251221
  Transmission Date: 20260117
  Serious: No
  Sender: MERCK SHARP & DOHME LLC
  Company Number: US-009507513-2361687

PATIENT
  Age: 77 Year
  Sex: Male
  Weight: 88 kg

DRUGS (2)
  1. SUGAMMADEX [Suspect]
     Active Substance: SUGAMMADEX
     Indication: Neuromuscular blockade reversal
     Dosage: 2.27 MG/KG, TWICE
     Route: 065
  2. ROCURONIUM [Concomitant]
     Active Substance: ROCURONIUM BROMIDE
     Dosage: TIME INTERVAL: TOTAL: 1.14 MG/KG

REACTIONS (1)
  - Therapeutic product effect incomplete [Recovered/Resolved]
